FAERS Safety Report 7710709-X (Version None)
Quarter: 2011Q3

REPORT INFORMATION
  Report Type: 
  Country: None (occurrence: None)
  Receive Date: 20110825
  Receipt Date: 20110815
  Transmission Date: 20111222
  Serious: Yes (Death, Other)
  Sender: FDA-Public Use
  Company Number: US-BAXTER-2011BH026973

PATIENT
  Weight: 3 kg

DRUGS (7)
  1. BUPIVACAINE, UNSPECIFIED [Suspect]
     Indication: MATERNAL EXPOSURE DURING PREGNANCY
     Route: 064
  2. FENTANYL CITRATE [Suspect]
     Indication: MATERNAL EXPOSURE DURING PREGNANCY
     Route: 064
  3. LIDOCAINE HYDROCHLORIDE [Suspect]
     Indication: MATERNAL EXPOSURE DURING PREGNANCY
     Route: 064
  4. BUPIVACAINE, UNSPECIFIED [Suspect]
     Route: 064
  5. BUPIVACAINE, UNSPECIFIED [Suspect]
     Route: 064
  6. FENTANYL CITRATE [Suspect]
     Route: 064
  7. BUPIVACAINE, UNSPECIFIED [Suspect]
     Route: 064

REACTIONS (2)
  - ANOXIA [None]
  - MATERNAL EXPOSURE DURING PREGNANCY [None]
